FAERS Safety Report 4819108-1 (Version None)
Quarter: 2005Q4

REPORT INFORMATION
  Report Type: 
  Country: None (occurrence: None)
  Receive Date: 20051031
  Receipt Date: 20050817
  Transmission Date: 20060501
  Serious: No
  Sender: FDA-Public Use
  Company Number: 2005PV001073

PATIENT
  Age: 67 Year
  Sex: Female
  Weight: 115.6672 kg

DRUGS (5)
  1. SYMLIN [Suspect]
     Indication: DIABETES MELLITUS NON-INSULIN-DEPENDENT
     Dosage: 60 MCG, TID; SC, 120 MCG, TID, SC
     Route: 058
     Dates: start: 20050809, end: 20050811
  2. SYMLIN [Suspect]
     Indication: DIABETES MELLITUS NON-INSULIN-DEPENDENT
     Dosage: 60 MCG, TID; SC, 120 MCG, TID, SC
     Route: 058
     Dates: start: 20050812
  3. HUMULIN 70/30 [Concomitant]
  4. BENICAR [Concomitant]
  5. HUMULIN 70/30 [Concomitant]

REACTIONS (1)
  - BLOOD GLUCOSE INCREASED [None]
